FAERS Safety Report 11810260 (Version 1)
Quarter: 2015Q4

REPORT INFORMATION
  Report Type: Spontaneous
  Country: US (occurrence: None)
  Receive Date: 20151207
  Receipt Date: 20151207
  Transmission Date: 20160305
  Serious: Yes (Other)
  Sender: FDA-Public Use
  Company Number: None

PATIENT
  Age: 26 Year
  Sex: Female
  Weight: 70.31 kg

DRUGS (2)
  1. COMPOUND W FREEZE OFF [Suspect]
     Active Substance: DIMETHYL ETHER\PROPANE
  2. BIRTHCONTROL (B-YAZ) [Concomitant]

REACTIONS (2)
  - Product quality issue [None]
  - Application site burn [None]

NARRATIVE: CASE EVENT DATE: 20151204
